FAERS Safety Report 9684056 (Version 2)
Quarter: 2013Q4

REPORT INFORMATION
  Report Type: Report from Study
  Country: CN (occurrence: CN)
  Receive Date: 20131112
  Receipt Date: 20131115
  Transmission Date: 20140711
  Serious: Yes (Death)
  Sender: FDA-Public Use
  Company Number: CN-BRISTOL-MYERS SQUIBB COMPANY-19794403

PATIENT
  Age: 55 Year
  Sex: Male
  Weight: 51 kg

DRUGS (3)
  1. CETUXIMAB [Suspect]
     Indication: OROPHARYNGEAL CANCER
     Dates: start: 20131029
  2. CISPLATIN [Suspect]
     Indication: OROPHARYNGEAL CANCER
     Dates: start: 20131029
  3. DOCETAXEL [Suspect]
     Indication: OROPHARYNGEAL CANCER
     Dates: start: 20131029

REACTIONS (2)
  - Bone marrow failure [Fatal]
  - Respiratory failure [Fatal]
